FAERS Safety Report 6218520-6 (Version None)
Quarter: 2009Q2

REPORT INFORMATION
  Report Type: 
  Country: None (occurrence: None)
  Receive Date: 20090608
  Receipt Date: 20090529
  Transmission Date: 20091009
  Serious: Yes (Other)
  Sender: FDA-Public Use
  Company Number: CA-JNJFOC-20090600595

PATIENT
  Age: 57 Year
  Sex: Male

DRUGS (1)
  1. REMICADE [Suspect]
     Indication: ANKYLOSING SPONDYLITIS
     Dosage: SEVERAL INFUSIONS
     Route: 042

REACTIONS (1)
  - MALIGNANT MELANOMA [None]
